FAERS Safety Report 6221816-5 (Version None)
Quarter: 2009Q2

REPORT INFORMATION
  Report Type: 
  Country: None (occurrence: None)
  Receive Date: 20090608
  Receipt Date: 20090528
  Transmission Date: 20091009
  Serious: Yes (Hospitalization)
  Sender: FDA-Public Use
  Company Number: 0905-SPO-SPLN-0059

PATIENT
  Age: 9 Year
  Sex: Female

DRUGS (1)
  1. SUPPRELIN LA [Suspect]
     Indication: PRECOCIOUS PUBERTY
     Dosage: 50 MG, 1 IN 1 Y, SUB Q. IMPLANT
     Dates: start: 20090521

REACTIONS (1)
  - GRAND MAL CONVULSION [None]
